FAERS Safety Report 4807155-5 (Version None)
Quarter: 2005Q4

REPORT INFORMATION
  Report Type: 
  Country: None (occurrence: None)
  Receive Date: 20051020
  Receipt Date: 20051004
  Transmission Date: 20060501
  Serious: Yes (Death, Life-Threatening)
  Sender: FDA-Public Use
  Company Number: 12380

PATIENT
  Age: 48 Year
  Sex: Male
  Weight: 61 kg

DRUGS (7)
  1. FLUCONAZOLE [Suspect]
     Indication: PNEUMONIA FUNGAL
     Dosage: 400 MG FREQ
     Dates: start: 20000605
  2. CYTARABINE [Suspect]
     Indication: ACUTE MYELOID LEUKAEMIA
     Dosage: 30 MG/M2 PER CYCLE
     Dates: start: 20000101
  3. ACLARUBICIN HYDROCHLORIDE [Suspect]
     Indication: ACUTE MYELOID LEUKAEMIA
     Dosage: 300 PER CYCLE
     Dates: start: 20000101
  4. G-CSF [Suspect]
     Indication: ACUTE MYELOID LEUKAEMIA
     Dosage: 300 PER CYCLE
     Dates: start: 20000101
  5. MAXIPIME [Concomitant]
  6. AMIKACIN [Concomitant]
  7. AMPHOTERICIN B [Concomitant]

REACTIONS (9)
  - BLOOD CALCIUM DECREASED [None]
  - BONE MARROW FAILURE [None]
  - CANDIDIASIS [None]
  - ENDOTOXIC SHOCK [None]
  - IMMUNOSUPPRESSION [None]
  - LONG QT SYNDROME [None]
  - PNEUMONIA FUNGAL [None]
  - SEPSIS [None]
  - TORSADE DE POINTES [None]
